FAERS Safety Report 6607078-5 (Version None)
Quarter: 2010Q1

REPORT INFORMATION
  Report Type: 
  Country: None (occurrence: None)
  Receive Date: 20100219
  Receipt Date: 20100210
  Transmission Date: 20100710
  Serious: Yes (Death, Hospitalization)
  Sender: FDA-Public Use
  Company Number: 006744

PATIENT
  Sex: Female
  Weight: 103.4 kg

DRUGS (2)
  1. KEPPRA [Suspect]
     Dates: end: 20091106
  2. XELODA [Suspect]
     Indication: BREAST CANCER
     Dosage: (2000 MG 1X/12 HOURS ORAL)
     Route: 048
     Dates: start: 20091026, end: 20091104

REACTIONS (18)
  - APHASIA [None]
  - CONVULSION [None]
  - DECREASED APPETITE [None]
  - DIVERTICULITIS [None]
  - DYSARTHRIA [None]
  - FALL [None]
  - HEAD INJURY [None]
  - INTERVERTEBRAL DISC PROTRUSION [None]
  - INTRACRANIAL PRESSURE INCREASED [None]
  - MALIGNANT NEOPLASM PROGRESSION [None]
  - METASTASES TO LIVER [None]
  - METASTASES TO MENINGES [None]
  - NUCLEAR MAGNETIC RESONANCE IMAGING BRAIN ABNORMAL [None]
  - PAIN [None]
  - PULMONARY EMBOLISM [None]
  - TRANSIENT ISCHAEMIC ATTACK [None]
  - TUMOUR NECROSIS [None]
  - VASOGENIC CEREBRAL OEDEMA [None]
